FAERS Safety Report 25949951 (Version 3)
Quarter: 2025Q4

REPORT INFORMATION
  Report Type: Spontaneous
  Country: UY (occurrence: UY)
  Receive Date: 20251022
  Receipt Date: 20251112
  Transmission Date: 20260117
  Serious: No
  Sender: PFIZER
  Company Number: UY-PFIZER INC-202500206112

PATIENT
  Age: 12 Year
  Sex: Male

DRUGS (1)
  1. GENOTROPIN [Suspect]
     Active Substance: SOMATROPIN
     Indication: Short stature
     Dosage: 0.6 TO 1 MG, 7 TIMES PER WEEK
     Dates: start: 20230928

REACTIONS (4)
  - Device defective [Unknown]
  - Device power source issue [Unknown]
  - Device information output issue [Unknown]
  - Device mechanical issue [Unknown]
